FAERS Safety Report 10050195 (Version 2)
Quarter: 2014Q2

REPORT INFORMATION
  Report Type: Report from Study
  Country: CZ (occurrence: CZ)
  Receive Date: 20140401
  Receipt Date: 20140508
  Transmission Date: 20141212
  Serious: Yes (Hospitalization)
  Sender: FDA-Public Use
  Company Number: CZ-PFIZER INC-2014088518

PATIENT
  Sex: Female

DRUGS (1)
  1. SUTENT [Suspect]
     Indication: RENAL CELL CARCINOMA
     Dosage: 37.5 MG, ONCE DAILY 4 WEEKS ON, TWO WEEKS OFF
     Route: 048
     Dates: start: 201402

REACTIONS (4)
  - Loss of consciousness [Unknown]
  - Hypertension [Unknown]
  - Asthenia [Unknown]
  - Viral infection [Unknown]
